FAERS Safety Report 21081503 (Version 1)
Quarter: 2022Q3

REPORT INFORMATION
  Report Type: Spontaneous
  Country: IR (occurrence: IR)
  Receive Date: 20220714
  Receipt Date: 20220714
  Transmission Date: 20221026
  Serious: Yes (Death, Hospitalization, Other)
  Sender: FDA-Public Use
  Company Number: None

PATIENT
  Age: 60 Year
  Sex: Female

DRUGS (2)
  1. AMPHETAMINE SULFATE [Suspect]
     Active Substance: AMPHETAMINE SULFATE
     Indication: Product used for unknown indication
     Route: 065
  2. ALPRAZOLAM [Suspect]
     Active Substance: ALPRAZOLAM
     Indication: Product used for unknown indication
     Route: 065

REACTIONS (9)
  - Depressed level of consciousness [Fatal]
  - Gastrointestinal perforation [Fatal]
  - Cardio-respiratory arrest [Fatal]
  - Cytomegalovirus gastroenteritis [Fatal]
  - Peritonitis [Fatal]
  - Toxicity to various agents [Fatal]
  - Bundle branch block [Fatal]
  - Intentional overdose [Fatal]
  - Drug abuse [Fatal]
